FAERS Safety Report 8422011-1 (Version None)
Quarter: 2012Q2

REPORT INFORMATION
  Report Type: 
  Country: None (occurrence: None)
  Receive Date: 20120323
  Receipt Date: 20110919
  Transmission Date: 20120825
  Serious: Yes (Death, Life-Threatening, Hospitalization, Other)
  Sender: FDA-Public Use
  Company Number: 163-21880-11021521

PATIENT
  Age: 81 Year
  Sex: Male

DRUGS (21)
  1. AVELOX [Concomitant]
  2. NYSTATIN [Concomitant]
  3. AMIKACIN [Concomitant]
  4. MORPHINE [Concomitant]
  5. ZOMETA [Concomitant]
  6. BLOOD (BLOOD AND RELATED PRODUCTS) [Concomitant]
  7. GABAPENTIN [Concomitant]
  8. SEROQUEL [Concomitant]
  9. DUONEB [Concomitant]
  10. PROTONIX [Concomitant]
  11. ANTIBIOTICS (ANTIBIOTICS) [Concomitant]
  12. VICODIN [Concomitant]
  13. DEXAMETHASONE [Concomitant]
  14. CYMBALTA [Concomitant]
  15. METHADONE HCL [Concomitant]
  16. PYRIDIUM (PHENAZOPYRIDINE HYDROCHLORIDE) [Concomitant]
  17. BACLOFEN [Concomitant]
  18. REVLIMID [Suspect]
     Indication: MULTIPLE MYELOMA
     Dosage: 20 MG, DAILY X 1-21/28 DAYS, PO
     Route: 048
     Dates: start: 20110101
  19. SENNA (SENNA) [Concomitant]
  20. FLONASE [Concomitant]
  21. HEPARIN [Concomitant]

REACTIONS (3)
  - PNEUMONIA [None]
  - DEEP VEIN THROMBOSIS [None]
  - URINARY TRACT INFECTION PSEUDOMONAL [None]
